FAERS Safety Report 10608327 (Version 3)
Quarter: 2020Q2

REPORT INFORMATION
  Report Type: Spontaneous
  Country: GB (occurrence: GB)
  Receive Date: 20141125
  Receipt Date: 20200605
  Transmission Date: 20200713
  Serious: Yes (Life-Threatening, Hospitalization, Other)
  Sender: FDA-Public Use
  Company Number: PHHY2014GB150866

PATIENT
  Age: 32 Year
  Sex: Male

DRUGS (6)
  1. MIRTAZAPINE. [Suspect]
     Active Substance: MIRTAZAPINE
     Indication: SUICIDE ATTEMPT
  2. MIRTAZAPINE. [Suspect]
     Active Substance: MIRTAZAPINE
     Indication: DEPRESSION
  3. HERBESSER [Suspect]
     Active Substance: DILTIAZEM HYDROCHLORIDE
     Indication: INTENTIONAL OVERDOSE
     Dosage: 5040 MG, IN TOTAL
     Route: 048
  4. BISOPROLOL [Suspect]
     Active Substance: BISOPROLOL
     Indication: INTENTIONAL OVERDOSE
     Dosage: 200 MG, IN TOTAL
     Route: 048
  5. SIMVASTATIN. [Suspect]
     Active Substance: SIMVASTATIN
     Indication: INTENTIONAL OVERDOSE
     Dosage: 280 MG, IN TOTAL
     Route: 048
  6. MIRTAZAPINE. [Suspect]
     Active Substance: MIRTAZAPINE
     Indication: INTENTIONAL SELF-INJURY
     Dosage: UNK
     Route: 065

REACTIONS (29)
  - Anuria [Recovering/Resolving]
  - Blood lactic acid increased [Recovering/Resolving]
  - Blood glucose increased [Recovering/Resolving]
  - Coma scale abnormal [Unknown]
  - Hypothermia [Recovering/Resolving]
  - Metabolic acidosis [Recovering/Resolving]
  - Bradycardia [Recovered/Resolved]
  - Blood creatinine increased [Recovering/Resolving]
  - Atrioventricular block [Recovering/Resolving]
  - Hypokalaemia [Recovering/Resolving]
  - Heart rate decreased [Unknown]
  - Cardiac arrest [Recovered/Resolved]
  - Rhabdomyolysis [Recovering/Resolving]
  - Intentional overdose [Recovering/Resolving]
  - Coma [Recovered/Resolved]
  - Vasodilatation [Recovering/Resolving]
  - Atrioventricular block complete [Recovering/Resolving]
  - Myopathy [Recovering/Resolving]
  - Blood pH decreased [Recovering/Resolving]
  - Blood creatine phosphokinase increased [Recovering/Resolving]
  - Overdose [Recovering/Resolving]
  - Hypotension [Recovered/Resolved]
  - Hypoxia [Recovering/Resolving]
  - Oliguria [Recovering/Resolving]
  - Respiratory acidosis [Recovering/Resolving]
  - Acidosis [Recovering/Resolving]
  - Muscular weakness [Recovering/Resolving]
  - PO2 decreased [Recovering/Resolving]
  - PCO2 decreased [Recovering/Resolving]
